FAERS Safety Report 9124406 (Version 3)
Quarter: 2013Q1

REPORT INFORMATION
  Report Type: Report from Study
  Country: RO (occurrence: RO)
  Receive Date: 20130116
  Receipt Date: 20130313
  Transmission Date: 20140127
  Serious: Yes (Hospitalization)
  Sender: FDA-Public Use
  Company Number: RO-PFIZER INC-2013012966

PATIENT
  Age: 74 Year
  Sex: Female

DRUGS (6)
  1. SIMVASTATIN [Suspect]
     Dosage: 20 MG, 1X/DAY
  2. FLUCONAZOLE [Interacting]
     Indication: CANDIDA INFECTION
     Dosage: 150 MG, (2 TABLETS) PER WEEK
  3. INDAPAMIDE [Concomitant]
     Dosage: 1.5 MG, DAILY
  4. TRIMETAZIDINE [Concomitant]
     Dosage: 70 MG, DAILY
  5. LOSARTAN [Concomitant]
     Dosage: 20 MG, DAILY
  6. MEBEVERINE [Concomitant]
     Dosage: 400 MG, DAILY FOR 2 MONTHS

REACTIONS (4)
  - Drug interaction [Recovered/Resolved]
  - Myalgia [Recovered/Resolved]
  - Abdominal pain [Recovered/Resolved]
  - Spinal pain [Recovered/Resolved]
